FAERS Safety Report 21383268 (Version 1)
Quarter: 2022Q3

REPORT INFORMATION
  Report Type: Spontaneous
  Country: US (occurrence: US)
  Receive Date: 20220927
  Receipt Date: 20220927
  Transmission Date: 20221027
  Serious: No
  Sender: FDA-Public Use
  Company Number: US-JNJFOC-20220941470

PATIENT
  Age: 72 Year
  Sex: Male

DRUGS (1)
  1. ZYTIGA [Suspect]
     Active Substance: ABIRATERONE ACETATE
     Indication: Product used for unknown indication
     Dosage: 500MG 2CAP ONCE DAILY
     Route: 048

REACTIONS (3)
  - Hot flush [Unknown]
  - Feeling hot [Unknown]
  - Vision blurred [Unknown]

NARRATIVE: CASE EVENT DATE: 20220914
